FAERS Safety Report 23480006 (Version 2)
Quarter: 2025Q1

REPORT INFORMATION
  Report Type: Spontaneous
  Country: US (occurrence: US)
  Receive Date: 20240205
  Receipt Date: 20250226
  Transmission Date: 20250409
  Serious: No
  Sender: UCB
  Company Number: US-UCBSA-2023057236

PATIENT
  Sex: Male

DRUGS (1)
  1. KEPPRA [Suspect]
     Active Substance: LEVETIRACETAM
     Indication: Epilepsy

REACTIONS (8)
  - Self-injurious ideation [Unknown]
  - Dizziness [Unknown]
  - Sinus congestion [Unknown]
  - Mood swings [Unknown]
  - Psychiatric symptom [Unknown]
  - Headache [Unknown]
  - Balance disorder [Unknown]
  - Drug ineffective [Unknown]
